FAERS Safety Report 5229308-7 (Version None)
Quarter: 2007Q1

REPORT INFORMATION
  Report Type: 
  Country: None (occurrence: None)
  Receive Date: 20070131
  Receipt Date: 20070119
  Transmission Date: 20070707
  Serious: Yes (Hospitalization)
  Sender: FDA-Public Use
  Company Number: 2007PV028716

PATIENT
  Age: 64 Year
  Sex: Female
  Weight: 67.1324 kg

DRUGS (4)
  1. BYETTA [Suspect]
     Indication: DIABETES MELLITUS NON-INSULIN-DEPENDENT
     Dosage: 5 MCG;BID;SC
     Route: 058
     Dates: start: 20070101
  2. FUROSEMIDE [Suspect]
     Indication: FLUID RETENTION
     Dosage: 40 MG;QAM;PO
     Route: 048
  3. GLIPIZIDE [Concomitant]
  4. HUMULIN 70/30 [Concomitant]

REACTIONS (6)
  - BACK INJURY [None]
  - DEHYDRATION [None]
  - DIZZINESS [None]
  - FALL [None]
  - HEAD INJURY [None]
  - LOSS OF CONSCIOUSNESS [None]
